FAERS Safety Report 13913612 (Version 1)
Quarter: 2017Q3

REPORT INFORMATION
  Report Type: Spontaneous
  Country: US (occurrence: None)
  Receive Date: 20170826
  Receipt Date: 20170826
  Transmission Date: 20171127
  Serious: No
  Sender: FDA-Public Use
  Company Number: None

PATIENT
  Age: 55 Year
  Sex: Male

DRUGS (1)
  1. CYCLOSPORINE CAP 25MG MOD [Suspect]
     Active Substance: CYCLOSPORINE
     Dosage: QAM
     Route: 048

REACTIONS (3)
  - Cardiac failure [None]
  - Disease complication [None]
  - Cardiac disorder [None]

NARRATIVE: CASE EVENT DATE: 20170805
